FAERS Safety Report 8998220 (Version 1)
Quarter: 2013Q1

REPORT INFORMATION
  Report Type: Report from Study
  Country: US (occurrence: US)
  Receive Date: 20130104
  Receipt Date: 20130104
  Transmission Date: 20140127
  Serious: No
  Sender: FDA-Public Use
  Company Number: US-VERTEX PHARMACEUTICALS INC.-2013-000107

PATIENT
  Sex: Female
  Weight: 59 kg

DRUGS (4)
  1. VX-950 (TELAPREVIR) [Suspect]
     Indication: HEPATITIS C
     Dosage: 750 MG, TID
     Route: 048
     Dates: start: 2012
  2. RIBASPHERE [Suspect]
     Indication: HEPATITIS C
     Dosage: 200 MG, BID
  3. PEGINTRON                          /01543001/ [Suspect]
     Indication: HEPATITIS C
     Dosage: 80 ?G, QW
     Route: 058
     Dates: start: 2012
  4. LYRICA [Concomitant]

REACTIONS (2)
  - Nasopharyngitis [Unknown]
  - Fatigue [Unknown]
